FAERS Safety Report 10463705 (Version 1)
Quarter: 2014Q3

REPORT INFORMATION
  Report Type: Report from Study
  Country: US (occurrence: US)
  Receive Date: 20140919
  Receipt Date: 20140919
  Transmission Date: 20150326
  Serious: Yes (Other)
  Sender: FDA-Public Use
  Company Number: US-SA-2014SA128206

PATIENT
  Age: 63 Year
  Sex: Male

DRUGS (1)
  1. LANTUS [Suspect]
     Active Substance: INSULIN GLARGINE
     Indication: DIABETES MELLITUS
     Dosage: DOSE : SPLIT IN 65 AND 35 UNITS
     Route: 065

REACTIONS (7)
  - Cardiac fibrillation [Not Recovered/Not Resolved]
  - Cardiac failure congestive [Unknown]
  - Drug administration error [Unknown]
  - Myocardial infarction [Unknown]
  - Chest pain [Unknown]
  - Cardiac disorder [Unknown]
  - Cardiac operation [Unknown]
